FAERS Safety Report 5054924-5 (Version None)
Quarter: 2006Q3

REPORT INFORMATION
  Report Type: 
  Country: None (occurrence: None)
  Receive Date: 20060719
  Receipt Date: 20060619
  Transmission Date: 20061208
  Serious: Yes (Hospitalization)
  Sender: FDA-Public Use
  Company Number: PHBS2006JP09270

PATIENT
  Age: 46 Year
  Sex: Male
  Weight: 50 kg

DRUGS (4)
  1. GLEEVEC [Suspect]
     Indication: CHRONIC MYELOID LEUKAEMIA
     Dosage: 400 MG/D
     Route: 048
     Dates: start: 20050721, end: 20050921
  2. GLEEVEC [Suspect]
     Dosage: 300 MG/D
     Route: 048
     Dates: start: 20050922
  3. GLEEVEC [Suspect]
     Dosage: 400 MG/D
     Dates: start: 20060614
  4. KOLANTYL [Suspect]
     Dosage: 3G/D
     Route: 048
     Dates: start: 19981021

REACTIONS (6)
  - ANAEMIA [None]
  - HAEMORRHOIDAL HAEMORRHAGE [None]
  - MALAISE [None]
  - TESTICULAR OPERATION [None]
  - TESTICULAR SWELLING [None]
  - TESTIS CANCER [None]
